FAERS Safety Report 9477839 (Version 1)
Quarter: 2013Q3

REPORT INFORMATION
  Report Type: Spontaneous
  Country: US (occurrence: None)
  Receive Date: 20130826
  Receipt Date: 20130826
  Transmission Date: 20140515
  Serious: Yes (Other)
  Sender: FDA-Public Use
  Company Number: None

PATIENT
  Age: 43 Year
  Sex: Female
  Weight: 108.86 kg

DRUGS (2)
  1. NIASPAN ER [Suspect]
     Indication: BLOOD CHOLESTEROL INCREASED
     Dosage: 500MG 1 PILL AT BEDTIME BY MOUTH
     Route: 048
     Dates: start: 20130807, end: 20130822
  2. NIASPAN ER [Suspect]
     Indication: BLOOD TRIGLYCERIDES INCREASED
     Dosage: 500MG 1 PILL AT BEDTIME BY MOUTH
     Route: 048
     Dates: start: 20130807, end: 20130822

REACTIONS (4)
  - Flushing [None]
  - Rash [None]
  - Pain [None]
  - Urticaria [None]
